FAERS Safety Report 5357343-7 (Version None)
Quarter: 2007Q2

REPORT INFORMATION
  Report Type: 
  Country: None (occurrence: None)
  Receive Date: 20070614
  Receipt Date: 20070611
  Transmission Date: 20071010
  Serious: Yes (Hospitalization)
  Sender: FDA-Public Use
  Company Number: A0655062A

PATIENT
  Age: 46 Year
  Sex: Male

DRUGS (5)
  1. AVANDIA [Suspect]
     Dosage: 4MG TWICE PER DAY
     Route: 048
     Dates: end: 20070601
  2. VYTORIN [Concomitant]
  3. BYETTA [Concomitant]
  4. INSULIN [Concomitant]
  5. LANTUS [Concomitant]

REACTIONS (4)
  - CARDIAC FAILURE [None]
  - DYSPHONIA [None]
  - ILL-DEFINED DISORDER [None]
  - OEDEMA PERIPHERAL [None]
